FAERS Safety Report 7659880-9 (Version None)
Quarter: 2011Q3

REPORT INFORMATION
  Report Type: 
  Country: None (occurrence: None)
  Receive Date: 20110805
  Receipt Date: 20110726
  Transmission Date: 20111222
  Serious: Yes (Other)
  Sender: FDA-Public Use
  Company Number: IT-JNJFOC-20110711447

PATIENT
  Age: 80 Year
  Sex: Female

DRUGS (2)
  1. INFLIXIMAB, RECOMBINANT [Suspect]
     Indication: PSORIASIS
     Dosage: 5 MG/KG AT INITIAL VISIT, SUBSEQUENT VISITS 2, 6 AND EVERY 8 WEEKS.
     Route: 042
  2. EFALIZUMAB [Suspect]
     Indication: PSORIASIS
     Route: 058

REACTIONS (1)
  - SQUAMOUS CELL CARCINOMA [None]
